FAERS Safety Report 5749735-9 (Version None)
Quarter: 2008Q2

REPORT INFORMATION
  Report Type: 
  Country: None (occurrence: None)
  Receive Date: 20080522
  Receipt Date: 20080522
  Transmission Date: 20081010
  Serious: Yes (Death)
  Sender: FDA-Public Use
  Company Number: None

PATIENT
  Age: 56 Year
  Sex: Male
  Weight: 58.9676 kg

DRUGS (1)
  1. ABATACEPT 750 MG BMS [Suspect]
     Indication: RHEUMATOID ARTHRITIS
     Dosage: 750 MG DAY 0, 15, Q 28 DA IV DRIP
     Route: 041
     Dates: start: 20071227, end: 20080130

REACTIONS (10)
  - ASTHENIA [None]
  - CHRONIC INFLAMMATORY DEMYELINATING POLYRADICULONEUROPATHY [None]
  - GUILLAIN-BARRE SYNDROME [None]
  - HEPATITIS C VIRUS [None]
  - LIVER DISORDER [None]
  - LUNG INFILTRATION [None]
  - NEUROPATHY PERIPHERAL [None]
  - PARAESTHESIA [None]
  - THERAPEUTIC RESPONSE DECREASED [None]
  - VASCULITIS [None]
